FAERS Safety Report 14084219 (Version 2)
Quarter: 2018Q1

REPORT INFORMATION
  Report Type: Spontaneous
  Country: IT (occurrence: IT)
  Receive Date: 20171013
  Receipt Date: 20180303
  Transmission Date: 20180508
  Serious: Yes (Disabling, Other)
  Sender: FDA-Public Use
  Company Number: IT-BRISTOL-MYERS SQUIBB COMPANY-BMS-2017-090613

PATIENT
  Age: 79 Year
  Sex: Male

DRUGS (1)
  1. ELIQUIS [Suspect]
     Active Substance: APIXABAN
     Indication: CARDIAC FAILURE
     Dosage: 2 U, DAILY
     Route: 048
     Dates: start: 20170222, end: 20170226

REACTIONS (4)
  - Product use in unapproved indication [Unknown]
  - Subdural haematoma [Recovered/Resolved with Sequelae]
  - Asthenia [Recovered/Resolved with Sequelae]
  - Sensory loss [Recovered/Resolved with Sequelae]

NARRATIVE: CASE EVENT DATE: 20170222
